FAERS Safety Report 6557639-7 (Version None)
Quarter: 2010Q1

REPORT INFORMATION
  Report Type: 
  Country: None (occurrence: None)
  Receive Date: 20100129
  Receipt Date: 20100125
  Transmission Date: 20100710
  Serious: No
  Sender: FDA-Public Use
  Company Number: US-ROXANE LABORATORIES, INC.-2009-RO-01089RO

PATIENT
  Sex: Male

DRUGS (1)
  1. MORPHINE [Suspect]

REACTIONS (2)
  - DRUG INEFFECTIVE [None]
  - PAIN [None]
